FAERS Safety Report 22151470 (Version 1)
Quarter: 2023Q1

REPORT INFORMATION
  Report Type: Other
  Country: CH (occurrence: None)
  Receive Date: 20230329
  Receipt Date: 20230329
  Transmission Date: 20230417
  Serious: Yes (Death)
  Sender: FDA-Public Use
  Company Number: CH-ROCHE-3315314

PATIENT
  Age: 6 Month
  Sex: Male

DRUGS (11)
  1. MYCOPHENOLATE MOFETIL [Suspect]
     Active Substance: MYCOPHENOLATE MOFETIL
     Indication: Prophylaxis against graft versus host disease
     Route: 065
  2. RIBAVIRIN [Suspect]
     Active Substance: RIBAVIRIN
     Indication: Respiratory syncytial virus infection
     Route: 065
  3. FLUDARABINE [Suspect]
     Active Substance: FLUDARABINE PHOSPHATE
     Indication: Prophylaxis
     Route: 065
  4. ALEMTUZUMAB [Suspect]
     Active Substance: ALEMTUZUMAB
     Indication: Prophylaxis
     Route: 065
  5. TREOSULFAN [Suspect]
     Active Substance: TREOSULFAN
     Indication: Prophylaxis
     Dosage: 30 G/M2
     Route: 065
  6. CYCLOSPORINE [Suspect]
     Active Substance: CYCLOSPORINE
     Indication: Prophylaxis against graft versus host disease
     Route: 065
  7. PALIVIZUMAB [Concomitant]
     Active Substance: PALIVIZUMAB
     Indication: Respiratory syncytial virus infection
  8. ETANERCEPT [Concomitant]
     Active Substance: ETANERCEPT
  9. NITAZOXANIDE [Concomitant]
     Active Substance: NITAZOXANIDE
     Indication: Respiratory syncytial virus infection
  10. GANCICLOVIR [Concomitant]
     Active Substance: GANCICLOVIR
     Indication: Respiratory syncytial virus infection
  11. DEFIBROTIDE [Concomitant]
     Active Substance: DEFIBROTIDE (BOVINE)

REACTIONS (2)
  - Pneumonia respiratory syncytial viral [Fatal]
  - Off label use [Unknown]
